FAERS Safety Report 6946696-1 (Version None)
Quarter: 2010Q3

REPORT INFORMATION
  Report Type: 
  Country: None (occurrence: None)
  Receive Date: 20100827
  Receipt Date: 20090804
  Transmission Date: 20110219
  Serious: No
  Sender: FDA-Public Use
  Company Number: US-ABBOTT-09P-163-0589760-00

PATIENT
  Sex: Female
  Weight: 76.272 kg

DRUGS (4)
  1. NIASPAN [Suspect]
     Indication: LOW DENSITY LIPOPROTEIN INCREASED
     Dates: start: 20090803
  2. NIASPAN [Suspect]
     Indication: HIGH DENSITY LIPOPROTEIN DECREASED
  3. ADVIL LIQUI-GELS [Concomitant]
     Indication: HEADACHE
  4. DIOVAN [Concomitant]
     Indication: HYPERTENSION

REACTIONS (1)
  - ABDOMINAL PAIN UPPER [None]
